FAERS Safety Report 5282488-X (Version None)
Quarter: 2007Q1

REPORT INFORMATION
  Report Type: 
  Country: None (occurrence: None)
  Receive Date: 20070326
  Receipt Date: 20070320
  Transmission Date: 20070707
  Serious: Yes (Other)
  Sender: FDA-Public Use
  Company Number: SP01102

PATIENT
  Age: 47 Year
  Sex: Male
  Weight: 107.0489 kg

DRUGS (2)
  1. COLAZAL [Suspect]
     Indication: COLITIS
     Dosage: 3 IN 1 D, ORAL
     Route: 048
  2. ADDERALL 10 [Concomitant]

REACTIONS (7)
  - ABDOMINAL DISTENSION [None]
  - ANOSMIA [None]
  - ENCEPHALITIS [None]
  - MENTAL STATUS CHANGES [None]
  - SKIN LESION [None]
  - TESTICULAR DISORDER [None]
  - WEIGHT INCREASED [None]
